FAERS Safety Report 20367542 (Version 3)
Quarter: 2022Q1

REPORT INFORMATION
  Report Type: Spontaneous
  Country: US (occurrence: US)
  Receive Date: 20220124
  Receipt Date: 20220308
  Transmission Date: 20220423
  Serious: No
  Sender: FDA-Public Use
  Company Number: US-ORGANON-O2201USA001040

PATIENT
  Age: 18 Year
  Sex: Female
  Weight: 57.143 kg

DRUGS (2)
  1. NEXPLANON [Suspect]
     Active Substance: ETONOGESTREL
     Indication: Contraception
     Dosage: ONE EVERY THREE YEARS, LEFT ARM
     Route: 059
     Dates: start: 20220111, end: 20220111
  2. NEXPLANON [Suspect]
     Active Substance: ETONOGESTREL
     Indication: Intermenstrual bleeding

REACTIONS (5)
  - Complication of device insertion [Recovered/Resolved]
  - Device breakage [Recovered/Resolved]
  - Device placement issue [Recovered/Resolved]
  - Product quality issue [Unknown]
  - No adverse event [Unknown]

NARRATIVE: CASE EVENT DATE: 20220111
